FAERS Safety Report 12338186 (Version 1)
Quarter: 2016Q2

REPORT INFORMATION
  Report Type: Report from Study
  Country: CA (occurrence: CA)
  Receive Date: 20160505
  Receipt Date: 20160505
  Transmission Date: 20160815
  Serious: Yes (Hospitalization)
  Sender: FDA-Public Use
  Company Number: CA-CELGENEUS-CAN-2015123244

PATIENT
  Age: 70 Year
  Sex: Male
  Weight: 80.9 kg

DRUGS (55)
  1. PREGABALIN. [Concomitant]
     Active Substance: PREGABALIN
     Indication: PERIPHERAL SENSORY NEUROPATHY
     Dosage: .1 PERCENT
     Route: 048
     Dates: start: 20150708, end: 20150714
  2. QUETIAPINE. [Concomitant]
     Active Substance: QUETIAPINE
     Route: 048
     Dates: start: 20151111
  3. CIPROFLOXACIN. [Concomitant]
     Active Substance: CIPROFLOXACIN
     Route: 048
     Dates: start: 20151209, end: 20151209
  4. PANTOPRAZOLE [Concomitant]
     Active Substance: PANTOPRAZOLE SODIUM
     Indication: PROPHYLAXIS
     Dosage: 30 MILLIGRAM
     Route: 048
     Dates: start: 20150521
  5. CALCIUM CARBONATE. [Concomitant]
     Active Substance: CALCIUM CARBONATE
     Indication: BONE LESION
     Dosage: 1000 MILLIGRAM
     Route: 048
     Dates: start: 20150601
  6. ACETAMINOPHEN. [Concomitant]
     Active Substance: ACETAMINOPHEN
     Indication: BONE PAIN
     Dosage: 14 MILLIGRAM
     Route: 048
     Dates: start: 20150516
  7. FOSAMAX [Concomitant]
     Active Substance: ALENDRONATE SODIUM
     Indication: BONE LESION
     Route: 065
     Dates: start: 20150603, end: 20150715
  8. QUETIAPINE. [Concomitant]
     Active Substance: QUETIAPINE
     Route: 048
     Dates: start: 20151001, end: 20151014
  9. OXAZEPAM. [Concomitant]
     Active Substance: OXAZEPAM
     Indication: INSOMNIA
     Route: 048
     Dates: start: 20141229, end: 20150708
  10. HYDROMORPH CONTIN [Concomitant]
     Active Substance: HYDROMORPHONE
     Indication: BONE PAIN
     Route: 048
     Dates: start: 20150528, end: 20150708
  11. HYDROMORPH CONTIN [Concomitant]
     Active Substance: HYDROMORPHONE
     Route: 048
     Dates: start: 20150805, end: 20150812
  12. VALTREX [Concomitant]
     Active Substance: VALACYCLOVIR HYDROCHLORIDE
     Indication: PROPHYLAXIS
     Route: 048
     Dates: start: 20150618
  13. NICODERM CQ [Concomitant]
     Active Substance: NICOTINE
     Indication: NICOTINE DEPENDENCE
     Route: 062
     Dates: start: 20150605
  14. OLANZAPINE. [Concomitant]
     Active Substance: OLANZAPINE
     Route: 065
     Dates: start: 20150708, end: 20150811
  15. OLANZAPINE. [Concomitant]
     Active Substance: OLANZAPINE
     Route: 065
     Dates: start: 20150812, end: 20150819
  16. XYLOCAINE [Concomitant]
     Active Substance: LIDOCAINE HYDROCHLORIDE
     Indication: ANAESTHESIA
     Route: 065
     Dates: start: 20151102
  17. DEXAMETHASONE. [Suspect]
     Active Substance: DEXAMETHASONE
     Indication: PLASMA CELL MYELOMA
     Dosage: 4 MILLIGRAM
     Route: 048
     Dates: start: 20150618, end: 20151209
  18. ATIVAN [Concomitant]
     Active Substance: LORAZEPAM
     Route: 048
     Dates: start: 20151007, end: 20151015
  19. OXAZEPAM. [Concomitant]
     Active Substance: OXAZEPAM
     Route: 048
     Dates: start: 20150812
  20. IMODIUM [Concomitant]
     Active Substance: LOPERAMIDE HYDROCHLORIDE
     Indication: DIARRHOEA
     Route: 048
     Dates: start: 20150903
  21. REVLIMID [Suspect]
     Active Substance: LENALIDOMIDE
     Route: 048
     Dates: start: 20150909, end: 20151209
  22. PREGABALIN. [Concomitant]
     Active Substance: PREGABALIN
     Route: 048
     Dates: start: 20151130
  23. FRAGMIN [Concomitant]
     Active Substance: DALTEPARIN SODIUM
     Indication: THROMBOSIS PROPHYLAXIS
     Route: 058
     Dates: start: 20151202
  24. QUETIAPINE. [Concomitant]
     Active Substance: QUETIAPINE
     Route: 048
     Dates: start: 20151026, end: 20151110
  25. VITAMIN D [Concomitant]
     Active Substance: CHOLECALCIFEROL
     Indication: BONE LESION
     Dosage: 81 MILLIGRAM
     Route: 048
     Dates: start: 20150601
  26. HYDROMORPH CONTIN [Concomitant]
     Active Substance: HYDROMORPHONE
     Route: 048
     Dates: start: 20150821
  27. BIO-K [Concomitant]
     Indication: PRODUCT USED FOR UNKNOWN INDICATION
     Route: 065
     Dates: start: 20150831
  28. SENNOSIDES. [Concomitant]
     Active Substance: SENNOSIDES
     Indication: CONSTIPATION
     Route: 065
     Dates: start: 20150520, end: 20150829
  29. HYDROCORTISONE. [Concomitant]
     Active Substance: HYDROCORTISONE
     Indication: RASH
     Route: 065
     Dates: start: 20150626, end: 20150702
  30. REVLIMID [Suspect]
     Active Substance: LENALIDOMIDE
     Indication: PLASMA CELL MYELOMA
     Route: 048
     Dates: start: 20150618
  31. PREGABALIN. [Concomitant]
     Active Substance: PREGABALIN
     Indication: BONE PAIN
     Dosage: 90 MILLIGRAM
     Route: 048
     Dates: start: 20150715, end: 20151129
  32. PREGABALIN. [Concomitant]
     Active Substance: PREGABALIN
     Route: 048
     Dates: start: 20150526, end: 20150714
  33. CIPROFLOXACIN. [Concomitant]
     Active Substance: CIPROFLOXACIN
     Indication: INFECTION PROPHYLAXIS
     Route: 041
     Dates: start: 20151209, end: 20151209
  34. ATIVAN [Concomitant]
     Active Substance: LORAZEPAM
     Route: 048
     Dates: start: 20151016
  35. BIOTENE NOS [Concomitant]
     Active Substance: CETYLPYRIDINIUM CHLORIDE OR SODIUM FLUORIDE OR SODIUM MONOFLUOROPHOSPHATE OR GLUCOSE OXIDASE\LACTOFERRIN\LACTOPEROXIDASE BOVINE\LYSOZYME
     Indication: DRY MOUTH
     Dosage: 1 SPRAY
     Route: 065
     Dates: start: 20150714
  36. HYDROMORPH CONTIN [Concomitant]
     Active Substance: HYDROMORPHONE
     Route: 048
     Dates: start: 20150709, end: 20150728
  37. HYDROMORPH CONTIN [Concomitant]
     Active Substance: HYDROMORPHONE
     Route: 048
     Dates: start: 20150813, end: 20150820
  38. HYDROMORPHONE [Concomitant]
     Active Substance: HYDROMORPHONE
     Indication: BONE PAIN
     Route: 065
     Dates: start: 20150521, end: 201507
  39. OLANZAPINE. [Concomitant]
     Active Substance: OLANZAPINE
     Indication: INSOMNIA
     Route: 065
     Dates: start: 20150527, end: 20150707
  40. OLANZAPINE. [Concomitant]
     Active Substance: OLANZAPINE
     Route: 065
     Dates: start: 20150820, end: 20150825
  41. LAX-A-DAY [Concomitant]
     Indication: CONSTIPATION
     Route: 065
     Dates: start: 20150518, end: 20150829
  42. CHLORHEXIDINE [Concomitant]
     Active Substance: CHLORHEXIDINE
     Indication: ANTI-INFECTIVE THERAPY
     Route: 065
     Dates: start: 20151102
  43. QUETIAPINE. [Concomitant]
     Active Substance: QUETIAPINE
     Route: 048
     Dates: start: 20151015, end: 20151025
  44. ATIVAN [Concomitant]
     Active Substance: LORAZEPAM
     Indication: INSOMNIA
     Route: 048
     Dates: start: 20150908, end: 20151006
  45. REMERON [Concomitant]
     Active Substance: MIRTAZAPINE
     Indication: DEPRESSION
     Route: 048
     Dates: start: 20151006
  46. QUETIAPINE. [Concomitant]
     Active Substance: QUETIAPINE
     Indication: INSOMNIA
     Route: 048
     Dates: start: 20150826, end: 20151001
  47. AREDIA [Concomitant]
     Active Substance: PAMIDRONATE DISODIUM
     Indication: BONE LESION
     Route: 041
     Dates: start: 20150716
  48. TEMAZEPAM. [Concomitant]
     Active Substance: TEMAZEPAM
     Indication: INSOMNIA
     Route: 048
     Dates: start: 20140422
  49. ASA [Concomitant]
     Active Substance: ASPIRIN
     Indication: THROMBOSIS PROPHYLAXIS
     Route: 048
     Dates: start: 20150618, end: 20151201
  50. QUETIAPINE. [Concomitant]
     Active Substance: QUETIAPINE
     Dosage: 2 MILLIGRAM
     Route: 048
     Dates: start: 20150908, end: 20151015
  51. OXAZEPAM. [Concomitant]
     Active Substance: OXAZEPAM
     Route: 048
     Dates: start: 20150709, end: 20150811
  52. ARISTOCORT R [Concomitant]
     Indication: RASH
     Route: 061
     Dates: start: 20150702
  53. HYDROMORPH CONTIN [Concomitant]
     Active Substance: HYDROMORPHONE
     Route: 048
     Dates: start: 20150729, end: 20150804
  54. CELEXA [Concomitant]
     Active Substance: CITALOPRAM HYDROBROMIDE
     Indication: PRODUCT USED FOR UNKNOWN INDICATION
     Route: 065
     Dates: start: 20150930, end: 20151006
  55. DOCUSATE SODIUM. [Concomitant]
     Active Substance: DOCUSATE SODIUM
     Indication: CONSTIPATION
     Route: 065
     Dates: start: 20150520, end: 20150829

REACTIONS (1)
  - Bladder transitional cell carcinoma [Recovered/Resolved with Sequelae]

NARRATIVE: CASE EVENT DATE: 20151102
